FAERS Safety Report 19459459 (Version 1)
Quarter: 2021Q2

REPORT INFORMATION
  Report Type: Spontaneous
  Country: US (occurrence: US)
  Receive Date: 20210625
  Receipt Date: 20210625
  Transmission Date: 20210717
  Serious: Yes (Other)
  Sender: FDA-Public Use
  Company Number: None

PATIENT
  Age: 37 Year
  Sex: Female
  Weight: 63 kg

DRUGS (3)
  1. RYBELSUS [Suspect]
     Active Substance: SEMAGLUTIDE
     Indication: WEIGHT INCREASED
     Route: 048
     Dates: start: 20210407
  2. RYBELSUS [Suspect]
     Active Substance: SEMAGLUTIDE
     Indication: BLOOD GLUCOSE INCREASED
     Route: 048
     Dates: start: 20210407
  3. DOXYCYCLINE HYCLATE. [Suspect]
     Active Substance: DOXYCYCLINE HYCLATE
     Indication: SINUSITIS
     Dosage: ?          QUANTITY:20 CAPSULE(S);?
     Route: 048
     Dates: start: 20210607, end: 20210616

REACTIONS (11)
  - Sinusitis [None]
  - Confusional state [None]
  - Hypoglycaemia [None]
  - Headache [None]
  - Fatigue [None]
  - Irritability [None]
  - Anxiety [None]
  - Tremor [None]
  - Nausea [None]
  - Dry mouth [None]
  - Dizziness [None]

NARRATIVE: CASE EVENT DATE: 20210609
